FAERS Safety Report 11747303 (Version 2)
Quarter: 2015Q4

REPORT INFORMATION
  Report Type: Report from Study
  Country: US (occurrence: US)
  Receive Date: 20151117
  Receipt Date: 20151209
  Transmission Date: 20160304
  Serious: Yes (Other)
  Sender: FDA-Public Use
  Company Number: US-ABBVIE-15P-163-1497963-00

PATIENT
  Age: 33 Year
  Sex: Female

DRUGS (4)
  1. LUPRON DEPOT [Suspect]
     Active Substance: LEUPROLIDE ACETATE
     Indication: ENDOMETRIOSIS
     Route: 030
     Dates: start: 201511
  2. WELLBUTRIN [Concomitant]
     Active Substance: BUPROPION HYDROCHLORIDE
     Indication: ANXIETY
     Dosage: DAILY
     Route: 048
  3. WELLBUTRIN [Concomitant]
     Active Substance: BUPROPION HYDROCHLORIDE
     Indication: DEPRESSION
  4. LUPRON DEPOT [Suspect]
     Active Substance: LEUPROLIDE ACETATE
     Indication: ENDOMETRIOSIS
     Route: 030
     Dates: start: 2012

REACTIONS (7)
  - Ovarian cyst ruptured [Recovering/Resolving]
  - Abdominal pain [Unknown]
  - Ovarian adhesion [Not Recovered/Not Resolved]
  - Adnexa uteri pain [Recovering/Resolving]
  - Endometriosis [Recovered/Resolved]
  - Endometriosis [Unknown]
  - Uterine adhesions [Not Recovered/Not Resolved]

NARRATIVE: CASE EVENT DATE: 201510
